FAERS Safety Report 5019262-5 (Version None)
Quarter: 2006Q2

REPORT INFORMATION
  Report Type: 
  Country: None (occurrence: None)
  Receive Date: 20060530
  Receipt Date: 20050629
  Transmission Date: 20061013
  Serious: Yes (Other)
  Sender: FDA-Public Use
  Company Number: 2005095825

PATIENT
  Age: 80 Year
  Sex: Female

DRUGS (1)
  1. PREGABALIN                       (PREGABALIN) [Suspect]
     Indication: ILL-DEFINED DISORDER
     Dosage: 75 MG, 1 IN 1 D, ORAL
     Route: 048

REACTIONS (3)
  - FAECALOMA [None]
  - SOMNOLENCE [None]
  - THROMBOSIS MESENTERIC VESSEL [None]
